FAERS Safety Report 9735284 (Version 2)
Quarter: 2013Q4

REPORT INFORMATION
  Report Type: Spontaneous
  Country: FR (occurrence: FR)
  Receive Date: 20131206
  Receipt Date: 20131210
  Transmission Date: 20140711
  Serious: Yes (Hospitalization)
  Sender: FDA-Public Use
  Company Number: FR-PFIZER INC-2013345324

PATIENT
  Age: 86 Year
  Sex: Female

DRUGS (7)
  1. AMLOR [Suspect]
     Dosage: 5 MG, 1X/DAY
     Route: 048
  2. FUROSEMIDE [Suspect]
     Dosage: 20 MG, 1X/DAY
     Route: 048
  3. PREVISCAN [Suspect]
     Indication: ATRIAL FIBRILLATION
     Dosage: UNK
     Route: 048
     Dates: end: 20131001
  4. PREVISCAN [Suspect]
     Dosage: UNK
     Route: 048
     Dates: start: 20131017
  5. SEROPLEX [Suspect]
     Dosage: 10 MG, 1X/DAY
     Route: 048
  6. LEVOTHYROX [Suspect]
     Dosage: 150 UG, 1X/DAY
     Route: 048
  7. CONTRAMAL [Suspect]
     Route: 048

REACTIONS (1)
  - Subdural haematoma [Not Recovered/Not Resolved]
